FAERS Safety Report 25400649 (Version 1)
Quarter: 2025Q2

REPORT INFORMATION
  Report Type: Spontaneous
  Country: RU (occurrence: RU)
  Receive Date: 20250605
  Receipt Date: 20250605
  Transmission Date: 20250717
  Serious: Yes (Hospitalization)
  Sender: ITALFARMACO SPA
  Company Number: RU-ITALFARMACO SPA-2178094

PATIENT
  Age: 70 Year
  Sex: Male

DRUGS (1)
  1. TIGLUTIK [Suspect]
     Active Substance: RILUZOLE
     Indication: Amyotrophic lateral sclerosis

REACTIONS (1)
  - Pancreatitis acute [Not Recovered/Not Resolved]
